FAERS Safety Report 17534931 (Version 5)
Quarter: 2020Q3

REPORT INFORMATION
  Report Type: Spontaneous
  Country: US (occurrence: US)
  Receive Date: 20200312
  Receipt Date: 20200930
  Transmission Date: 20201102
  Serious: Yes (Other)
  Sender: FDA-Public Use
  Company Number: US-AKCEA THERAPEUTICS-2019IS001807

PATIENT
  Age: 59 Year
  Sex: Male

DRUGS (3)
  1. ISSD (INTEGRATED SYRINGE SAFETY DEVICE) [Suspect]
     Active Substance: DEVICE
  2. TEGSEDI [Suspect]
     Active Substance: INOTERSEN SODIUM
     Indication: HEREDITARY NEUROPATHIC AMYLOIDOSIS
     Route: 058
     Dates: start: 20191126, end: 20191220
  3. TEGSEDI [Suspect]
     Active Substance: INOTERSEN SODIUM
     Route: 058

REACTIONS (16)
  - Myalgia [Not Recovered/Not Resolved]
  - Urine abnormality [Unknown]
  - Fatigue [Unknown]
  - Product dispensing issue [Unknown]
  - Muscle twitching [Not Recovered/Not Resolved]
  - Bacterial test positive [Unknown]
  - Urinary casts [Unknown]
  - Urine ketone body present [Unknown]
  - Abdominal discomfort [Unknown]
  - Lymphadenopathy [Unknown]
  - Injection site erythema [Recovered/Resolved]
  - Flank pain [Recovered/Resolved]
  - Creatinine urine abnormal [Unknown]
  - Sarcoidosis [Unknown]
  - Protein urine present [Unknown]
  - Protein urine [Unknown]

NARRATIVE: CASE EVENT DATE: 2019
